FAERS Safety Report 5081495-X (Version None)
Quarter: 2006Q3

REPORT INFORMATION
  Report Type: 
  Country: None (occurrence: None)
  Receive Date: 20060816
  Receipt Date: 20060816
  Transmission Date: 20061208
  Serious: No
  Sender: FDA-Public Use
  Company Number: None

PATIENT

DRUGS (2)
  1. BUMETANIDE [Suspect]
     Dosage: INJECTABLE
  2. NOREPINEPHRINE BITARTRATE [Suspect]
     Dosage: INJECTABLE

REACTIONS (8)
  - ANXIETY [None]
  - CHEST DISCOMFORT [None]
  - CHEST PAIN [None]
  - DRUG DISPENSING ERROR [None]
  - ELECTROCARDIOGRAM ST SEGMENT ELEVATION [None]
  - MEDICATION ERROR [None]
  - VENTRICULAR TACHYARRHYTHMIA [None]
  - WRONG DRUG ADMINISTERED [None]
